FAERS Safety Report 4291672-3 (Version None)
Quarter: 2004Q1

REPORT INFORMATION
  Report Type: 
  Country: None (occurrence: None)
  Receive Date: 20040126
  Receipt Date: 20031114
  Transmission Date: 20041129
  Serious: No
  Sender: FDA-Public Use
  Company Number: USA031152655

PATIENT
  Sex: Female

DRUGS (19)
  1. FORTEO [Suspect]
     Indication: OSTEOPOROSIS
     Dosage: 20 UG/DAY
     Dates: start: 20031112
  2. PREVACID [Concomitant]
  3. LISINOPRIL [Concomitant]
  4. ROCALTROL [Concomitant]
  5. HYDROCHLOROTHIAZIDE [Concomitant]
  6. PLAVIX [Concomitant]
  7. KCL (POTASSIUM CHLORIDE) [Concomitant]
  8. BEXTRA [Concomitant]
  9. ALLEGRA [Concomitant]
  10. QUININE [Concomitant]
  11. ATENOLOL [Concomitant]
  12. PROCRIT (ERYTHROPOIETIN) [Concomitant]
  13. IRON [Concomitant]
  14. QUESTRAN [Concomitant]
  15. IMODIUM [Concomitant]
  16. VIACTIV [Concomitant]
  17. FOLIC ACID [Concomitant]
  18. VITAMIN B COMPLEX CAP [Concomitant]
  19. FLAGYL [Concomitant]

REACTIONS (2)
  - MUSCLE TIGHTNESS [None]
  - PAIN IN EXTREMITY [None]
